FAERS Safety Report 14667420 (Version 2)
Quarter: 2018Q2

REPORT INFORMATION
  Report Type: Spontaneous
  Country: FR (occurrence: FR)
  Receive Date: 20180322
  Receipt Date: 20180407
  Transmission Date: 20180711
  Serious: Yes (Hospitalization)
  Sender: FDA-Public Use
  Company Number: FR-CONCORDIA PHARMACEUTICALS INC.-E2B_00010629

PATIENT
  Age: 47 Year
  Sex: Male
  Weight: 83 kg

DRUGS (7)
  1. DIFFU K [Suspect]
     Active Substance: POTASSIUM CHLORIDE
     Indication: PRODUCT USED FOR UNKNOWN INDICATION
     Route: 048
     Dates: start: 20180119, end: 20180216
  2. ACIDE FOLIQUE [Suspect]
     Active Substance: FOLIC ACID
     Indication: ALCOHOL DETOXIFICATION
     Route: 048
     Dates: start: 20180122, end: 20180216
  3. ACETYLCYSTEINE. [Suspect]
     Active Substance: ACETYLCYSTEINE
     Indication: PRODUCT USED FOR UNKNOWN INDICATION
     Route: 042
     Dates: start: 20180129, end: 20180203
  4. PRINCI B (PYRIDOXINE\THIAMINE) [Suspect]
     Active Substance: PYRIDOXINE\THIAMINE
     Indication: ALCOHOL DETOXIFICATION
     Route: 048
     Dates: start: 20180122, end: 20180216
  5. EUPANTOL [Suspect]
     Active Substance: PANTOPRAZOLE SODIUM
     Indication: PROPHYLAXIS
     Route: 048
     Dates: start: 20180118, end: 20180216
  6. PREDNISOLONE. [Suspect]
     Active Substance: PREDNISOLONE
     Indication: HEPATITIS
     Route: 048
     Dates: start: 20180118, end: 20180216
  7. NIQUITIN [Suspect]
     Active Substance: NICOTINE
     Indication: EX-TOBACCO USER
     Route: 003
     Dates: start: 20180118, end: 20180216

REACTIONS (1)
  - Stevens-Johnson syndrome [Recovering/Resolving]

NARRATIVE: CASE EVENT DATE: 20180212
